FAERS Safety Report 5346384-1 (Version None)
Quarter: 2007Q2

REPORT INFORMATION
  Report Type: 
  Country: None (occurrence: None)
  Receive Date: 20070430
  Receipt Date: 20070228
  Transmission Date: 20071010
  Serious: No
  Sender: FDA-Public Use
  Company Number: 012825

PATIENT
  Age: 47 Year
  Sex: Female

DRUGS (7)
  1. PRIALT [Suspect]
     Indication: DIABETIC NEUROPATHY
     Dosage: SEE IMAGE
     Route: 037
     Dates: start: 20061220, end: 20070101
  2. PRIALT [Suspect]
     Indication: DIABETIC NEUROPATHY
     Dosage: SEE IMAGE
     Route: 037
     Dates: start: 20070101, end: 20070123
  3. PRIALT [Suspect]
     Indication: DIABETIC NEUROPATHY
     Dosage: SEE IMAGE
     Route: 037
     Dates: start: 20061114
  4. NEURONTIN [Concomitant]
  5. OXYCODONE HCL [Concomitant]
  6. PROPOXYPHENE (DEXTROPROPOXYPHENE) [Concomitant]
  7. DILAUDID [Concomitant]

REACTIONS (3)
  - CONFUSIONAL STATE [None]
  - SEDATION [None]
  - SWELLING FACE [None]
